FAERS Safety Report 17182937 (Version 1)
Quarter: 2019Q4

REPORT INFORMATION
  Report Type: Spontaneous
  Country: BR (occurrence: BR)
  Receive Date: 20191220
  Receipt Date: 20191220
  Transmission Date: 20200122
  Serious: Yes (Hospitalization, Other)
  Sender: FDA-Public Use
  Company Number: BR-GILEAD-2019-0443071

PATIENT
  Age: 31 Year
  Sex: Female
  Weight: 65 kg

DRUGS (3)
  1. RIBAVIRIN. [Suspect]
     Active Substance: RIBAVIRIN
     Dosage: 500 MG
     Route: 065
     Dates: end: 20191209
  2. HARVONI [Suspect]
     Active Substance: LEDIPASVIR\SOFOSBUVIR
     Indication: HEPATITIS C
     Dosage: 1 DOSAGE FORM
     Route: 048
     Dates: start: 20191119
  3. RIBAVIRIN. [Suspect]
     Active Substance: RIBAVIRIN
     Indication: HEPATITIS C
     Dosage: 1000 MG
     Route: 065
     Dates: start: 20191119

REACTIONS (11)
  - Weight decreased [Unknown]
  - Hyperglycaemia [Unknown]
  - Drug hypersensitivity [Recovering/Resolving]
  - Syncope [Unknown]
  - Mouth ulceration [Unknown]
  - Dysphagia [Unknown]
  - Malaise [Unknown]
  - Malaise [Unknown]
  - Headache [Unknown]
  - Feeding disorder [Unknown]
  - Decreased appetite [Unknown]

NARRATIVE: CASE EVENT DATE: 20191211
